FAERS Safety Report 4565018-7 (Version None)
Quarter: 2005Q1

REPORT INFORMATION
  Report Type: 
  Country: None (occurrence: None)
  Receive Date: 20050131
  Receipt Date: 20031222
  Transmission Date: 20050727
  Serious: Yes (Death, Life-Threatening)
  Sender: FDA-Public Use
  Company Number: 200311561JP

PATIENT
  Age: 70 Year
  Sex: Female
  Weight: 64.1 kg

DRUGS (13)
  1. ARAVA [Suspect]
     Indication: RHEUMATOID ARTHRITIS
     Route: 048
     Dates: start: 20031104, end: 20031221
  2. PREDONINE [Concomitant]
     Indication: RHEUMATOID ARTHRITIS
     Route: 048
     Dates: end: 20031223
  3. LASIX [Concomitant]
     Indication: OEDEMA
     Route: 048
     Dates: end: 20031223
  4. LOXOPROFEN [Concomitant]
     Indication: RHEUMATOID ARTHRITIS
     Route: 048
     Dates: end: 20021223
  5. MUCOSTA [Concomitant]
     Indication: GASTRITIS
     Route: 048
     Dates: end: 20031223
  6. VITANEURIN [Concomitant]
     Indication: NEURALGIA
     Route: 048
     Dates: end: 20031223
  7. MAGNESIUM OXIDE [Concomitant]
     Indication: CONSTIPATION
     Route: 048
     Dates: start: 20031024, end: 20031223
  8. PL GRAN. [Concomitant]
     Indication: NASOPHARYNGITIS
     Route: 048
     Dates: start: 20031026, end: 20031222
  9. PL GRAN. [Concomitant]
     Indication: PROPHYLAXIS
     Route: 048
     Dates: start: 20031026, end: 20031222
  10. SHAKUYAKUKANZOUTOU [Concomitant]
     Indication: NEURALGIA
     Route: 048
     Dates: end: 20031223
  11. VOLTAREN [Concomitant]
     Indication: PAIN
     Route: 054
     Dates: end: 20031223
  12. AMLODIN [Concomitant]
     Indication: HYPERTENSION
     Route: 048
     Dates: start: 20031119, end: 20031223
  13. METHOTREXATE [Concomitant]
     Dates: end: 20030301

REACTIONS (19)
  - ACID FAST BACILLI INFECTION [None]
  - ASPERGILLOSIS [None]
  - BACTERIA SPUTUM IDENTIFIED [None]
  - BLOOD PRESSURE INCREASED [None]
  - CYTOMEGALOVIRUS INFECTION [None]
  - DIFFUSE ALVEOLAR DAMAGE [None]
  - DISEASE RECURRENCE [None]
  - DYSPNOEA EXERTIONAL [None]
  - HEPATIC NECROSIS [None]
  - INFLAMMATION [None]
  - INTERSTITIAL LUNG DISEASE [None]
  - LUNG NEOPLASM [None]
  - MUCOSAL EROSION [None]
  - NECROSIS [None]
  - PNEUMOCYSTIS JIROVECI INFECTION [None]
  - PO2 DECREASED [None]
  - PULMONARY CAVITATION [None]
  - RESPIRATORY FAILURE [None]
  - TUBERCULOSIS [None]
